FAERS Safety Report 17216853 (Version 2)
Quarter: 2020Q1

REPORT INFORMATION
  Report Type: Report from Study
  Country: US (occurrence: US)
  Receive Date: 20191231
  Receipt Date: 20200121
  Transmission Date: 20200409
  Serious: Yes (Hospitalization, Other)
  Sender: FDA-Public Use
  Company Number: US-ROCHE-2505591

PATIENT
  Age: 55 Year
  Sex: Female
  Weight: 118.04 kg

DRUGS (2)
  1. AUGMENTIN [Concomitant]
     Active Substance: AMOXICILLIN\CLAVULANATE POTASSIUM
  2. OCREVUS [Suspect]
     Active Substance: OCRELIZUMAB
     Indication: PRIMARY PROGRESSIVE MULTIPLE SCLEROSIS
     Dosage: DATE OF TREATMENT: 12/JUN/2019, 21/JUN/2018, 07/DEC/2019, 20/DEC/2019
     Route: 065
     Dates: start: 20180608

REACTIONS (4)
  - Ear infection [Not Recovered/Not Resolved]
  - Headache [Recovered/Resolved]
  - Myocardial infarction [Recovering/Resolving]
  - Upper respiratory tract infection [Recovering/Resolving]

NARRATIVE: CASE EVENT DATE: 20191210
